FAERS Safety Report 11767593 (Version 3)
Quarter: 2016Q1

REPORT INFORMATION
  Report Type: Spontaneous
  Country: DE (occurrence: DE)
  Receive Date: 20151123
  Receipt Date: 20160122
  Transmission Date: 20160525
  Serious: Yes (Hospitalization, Other)
  Sender: FDA-Public Use
  Company Number: DE-JNJFOC-20151120117

PATIENT
  Age: 94 Year
  Sex: Male
  Weight: 72.8 kg

DRUGS (2)
  1. XARELTO [Suspect]
     Active Substance: RIVAROXABAN
     Indication: CEREBROVASCULAR ACCIDENT PROPHYLAXIS
     Dosage: 15 MG, 6 TIMES A WEEK
     Route: 048
     Dates: start: 20140310, end: 20151112
  2. XARELTO [Suspect]
     Active Substance: RIVAROXABAN
     Indication: ATRIAL FIBRILLATION
     Dosage: 15 MG, 6 TIMES A WEEK
     Route: 048
     Dates: start: 20140310, end: 20151112

REACTIONS (4)
  - Subcutaneous haematoma [Unknown]
  - Intraocular pressure increased [Recovering/Resolving]
  - Product use issue [Unknown]
  - Vitreous haemorrhage [Recovering/Resolving]

NARRATIVE: CASE EVENT DATE: 20151110
